FAERS Safety Report 14509242 (Version 1)
Quarter: 2018Q1

REPORT INFORMATION
  Report Type: Spontaneous
  Country: US (occurrence: US)
  Receive Date: 20180209
  Receipt Date: 20180209
  Transmission Date: 20180509
  Serious: No
  Sender: FDA-Public Use
  Company Number: US-ELI_LILLY_AND_COMPANY-US201802003056

PATIENT
  Sex: Female

DRUGS (4)
  1. HUMULIN R U-500 [Suspect]
     Active Substance: INSULIN HUMAN
     Dosage: 5 U, DAILY (AT LUNCH)
     Route: 058
     Dates: start: 2013
  2. HUMULIN R U-500 [Suspect]
     Active Substance: INSULIN HUMAN
     Dosage: 70 U, BID (AT MORNING AND NIGHT)
     Route: 058
     Dates: start: 20180201
  3. HUMULIN R U-500 [Suspect]
     Active Substance: INSULIN HUMAN
     Indication: TYPE 2 DIABETES MELLITUS
     Dosage: 65 U, BID (AT MORNING AND NIGHT)
     Route: 058
     Dates: start: 2013
  4. HUMULIN R U-500 [Suspect]
     Active Substance: INSULIN HUMAN
     Dosage: 10 U, DAILY (AT LUNCH)
     Route: 058
     Dates: start: 20180201

REACTIONS (1)
  - Blood glucose increased [Recovering/Resolving]
